FAERS Safety Report 17957006 (Version 1)
Quarter: 2020Q2

REPORT INFORMATION
  Report Type: Spontaneous
  Country: US (occurrence: US)
  Receive Date: 20200629
  Receipt Date: 20200629
  Transmission Date: 20200714
  Serious: No
  Sender: FDA-Public Use
  Company Number: US-TORRENT-00010281

PATIENT
  Age: 75 Year
  Sex: Female
  Weight: 75 kg

DRUGS (5)
  1. METFORMIN [Concomitant]
     Active Substance: METFORMIN HYDROCHLORIDE
     Indication: DIABETES MELLITUS
     Dosage: 1000 MG 1 TABLET TWICE A DAY BY MOUTH
  2. DILTIAZEM ER [Concomitant]
     Active Substance: DILTIAZEM
     Indication: HYPERTENSION
     Dosage: 1 CAPSULE A DAY BY MOUTH
  3. GLIMEPIRIDE. [Concomitant]
     Active Substance: GLIMEPIRIDE
     Indication: DIABETES MELLITUS
     Dosage: 1 TABLET TWICE A DAY BY MOUTH
  4. CELECOXIB. [Concomitant]
     Active Substance: CELECOXIB
     Indication: MENISCUS INJURY
     Dosage: UNKNOWN
  5. CELECOXIB. [Suspect]
     Active Substance: CELECOXIB
     Indication: MENISCUS INJURY
     Dosage: BY MOUTH
     Dates: start: 20200427

REACTIONS (3)
  - Lip swelling [Not Recovered/Not Resolved]
  - Product substitution issue [Unknown]
  - Lip disorder [Not Recovered/Not Resolved]

NARRATIVE: CASE EVENT DATE: 202006
